FAERS Safety Report 4284216-3 (Version None)
Quarter: 2004Q1

REPORT INFORMATION
  Report Type: 
  Country: None (occurrence: None)
  Receive Date: 20040203
  Receipt Date: 20021115
  Transmission Date: 20041129
  Serious: Yes (Disabling)
  Sender: FDA-Public Use
  Company Number: US-ROCHE-325693

PATIENT
  Sex: Male

DRUGS (1)
  1. TAMIFLU [Suspect]
     Indication: INFLUENZA
     Route: 048
     Dates: start: 20020215, end: 20020215

REACTIONS (6)
  - ANOREXIA [None]
  - DEHYDRATION [None]
  - EATING DISORDER [None]
  - GASTRITIS [None]
  - OLIGODIPSIA [None]
  - WEIGHT DECREASED [None]
